FAERS Safety Report 5197973-9 (Version None)
Quarter: 2006Q4

REPORT INFORMATION
  Report Type: 
  Country: None (occurrence: None)
  Receive Date: 20061228
  Receipt Date: 20061220
  Transmission Date: 20070319
  Serious: Yes (Hospitalization, Disabling)
  Sender: FDA-Public Use
  Company Number: 234144

PATIENT
  Age: 13 Year
  Sex: Male
  Weight: 52.6 kg

DRUGS (2)
  1. NUTROPIN [Suspect]
     Indication: RADIOTHERAPY
     Dosage: 2.5 MG, 7/WEEK, SUBCUTANEOUS
     Route: 058
     Dates: start: 20021120
  2. L-THYROXINE (LEVOTHYROXINE SODIUM) [Concomitant]

REACTIONS (3)
  - ASTROCYTOMA [None]
  - CONVULSION [None]
  - IIIRD NERVE PARALYSIS [None]
